FAERS Safety Report 15808916 (Version 2)
Quarter: 2019Q1

REPORT INFORMATION
  Report Type: Spontaneous
  Country: CH (occurrence: CH)
  Receive Date: 20190110
  Receipt Date: 20190117
  Transmission Date: 20190417
  Serious: Yes (Other)
  Sender: FDA-Public Use
  Company Number: CH-GILEAD-2018-0381817

PATIENT
  Age: 59 Year
  Sex: Female
  Weight: 66 kg

DRUGS (6)
  1. EPCLUSA [Suspect]
     Active Substance: SOFOSBUVIR\VELPATASVIR
     Indication: CHRONIC HEPATITIS C
     Dosage: UNK
     Route: 065
     Dates: start: 20180321, end: 201806
  2. HALDOL [Concomitant]
     Active Substance: HALOPERIDOL
     Indication: DEPRESSION
     Route: 048
  3. SEQUASE [Concomitant]
     Active Substance: QUETIAPINE FUMARATE
     Indication: DEPRESSION
     Dosage: 400 MG
     Route: 048
  4. MIANSERIN [Concomitant]
     Active Substance: MIANSERIN
     Dosage: 30 MG
     Route: 048
     Dates: start: 20181123
  5. MIANSERIN [Concomitant]
     Active Substance: MIANSERIN
     Indication: DEPRESSION
     Dosage: 60 MG
     Route: 048
     Dates: end: 20181122
  6. KEMADRIN [Concomitant]
     Active Substance: PROCYCLIDINE HYDROCHLORIDE
     Indication: DEPRESSION
     Dosage: 5 MG
     Route: 048

REACTIONS (2)
  - Genotype drug resistance test positive [Not Recovered/Not Resolved]
  - Drug ineffective [Not Recovered/Not Resolved]

NARRATIVE: CASE EVENT DATE: 2018
